FAERS Safety Report 17351865 (Version 5)
Quarter: 2021Q1

REPORT INFORMATION
  Report Type: Spontaneous
  Country: CA (occurrence: CA)
  Receive Date: 20200130
  Receipt Date: 20210201
  Transmission Date: 20210419
  Serious: Yes (Hospitalization, Other)
  Sender: FDA-Public Use
  Company Number: CA-TEVA-2020-CA-1175606

PATIENT
  Age: 61 Year
  Sex: Male

DRUGS (4)
  1. GLUCARPIDASE [Suspect]
     Active Substance: GLUCARPIDASE
     Indication: ACUTE KIDNEY INJURY
     Dosage: VIAL STRENGTH: 1000 UNITS/VIAL; 50 UNITS/KG OVER 5 MINUTES AT 52 HOURS POST?METHOTREXATE TREATMENT
     Route: 040
  2. LEUCOVORIN. [Suspect]
     Active Substance: LEUCOVORIN
     Indication: TOXICITY TO VARIOUS AGENTS
     Dosage: 14880 MILLIGRAM DAILY; HIGH?DOSE THERAPY OVER 30 MINUTES EVERY 3 HOURS, 1860 MG
     Route: 042
  3. METHOTREXATE. [Suspect]
     Active Substance: METHOTREXATE
     Indication: DIFFUSE LARGE B-CELL LYMPHOMA
     Dosage: HIGH?DOSE THERAPY; OVER 4 HOURS, 6500 MG
     Route: 042
  4. GLUCARPIDASE [Suspect]
     Active Substance: GLUCARPIDASE
     Indication: TOXICITY TO VARIOUS AGENTS

REACTIONS (6)
  - Drug ineffective [Unknown]
  - Acute kidney injury [Recovered/Resolved]
  - Nephropathy toxic [Recovered/Resolved]
  - False positive investigation result [Recovered/Resolved]
  - Toxicity to various agents [Recovered/Resolved]
  - Off label use [Unknown]
